FAERS Safety Report 14232307 (Version 3)
Quarter: 2017Q4

REPORT INFORMATION
  Report Type: Spontaneous
  Country: DE (occurrence: DE)
  Receive Date: 20171128
  Receipt Date: 20171208
  Transmission Date: 20180321
  Serious: Yes (Death, Congenital Anomaly)
  Sender: FDA-Public Use
  Company Number: DE-ABBVIE-17P-062-2175391-00

PATIENT

DRUGS (1)
  1. VALPROATE CHRONO WINTHROP [Suspect]
     Active Substance: VALPROATE SODIUM
     Indication: EXPOSURE VIA BODY FLUID
     Route: 064

REACTIONS (3)
  - Foetal exposure during pregnancy [Unknown]
  - Congenital anomaly [Unknown]
  - Umbilical cord thrombosis [Fatal]
